FAERS Safety Report 16466009 (Version 2)
Quarter: 2019Q3

REPORT INFORMATION
  Report Type: Spontaneous
  Country: US (occurrence: US)
  Receive Date: 20190621
  Receipt Date: 20190924
  Transmission Date: 20191004
  Serious: No
  Sender: FDA-Public Use
  Company Number: US-ACORDA-ACO_158487_2019

PATIENT
  Sex: Female

DRUGS (1)
  1. INBRIJA [Suspect]
     Active Substance: LEVODOPA
     Indication: PARKINSON^S DISEASE
     Dosage: 42 MILLIGRAM/ 2 CAPSULES UPTO 5 TIMES PER DAY AS NEEDED
     Dates: start: 201904

REACTIONS (3)
  - Retching [Unknown]
  - Cough [Unknown]
  - Product quality issue [Unknown]
